FAERS Safety Report 9355334 (Version 1)
Quarter: 2013Q2

REPORT INFORMATION
  Report Type: Spontaneous
  Country: US (occurrence: US)
  Receive Date: 20130619
  Receipt Date: 20130619
  Transmission Date: 20140414
  Serious: Yes (Other)
  Sender: FDA-Public Use
  Company Number: US-ASTRAZENECA-2013SE42591

PATIENT
  Age: 58 Year
  Sex: Female
  Weight: 70.3 kg

DRUGS (8)
  1. SYMBICORT [Suspect]
     Indication: CHRONIC OBSTRUCTIVE PULMONARY DISEASE
     Dosage: TWO PUFFS BID
     Route: 055
     Dates: start: 2009
  2. EYE DROP [Suspect]
     Indication: GLAUCOMA
     Route: 065
  3. PRO AIR [Concomitant]
     Indication: INHALATION THERAPY
     Dosage: 108 MCG, TWO PUFFS  PRN
     Route: 055
  4. PROZAC [Concomitant]
     Indication: DEPRESSION
     Route: 048
     Dates: start: 1988
  5. ESGIC [Concomitant]
     Indication: OSTEOARTHRITIS
     Dosage: TID
     Route: 048
     Dates: start: 2003
  6. XANAX [Concomitant]
     Indication: INSOMNIA
     Route: 048
     Dates: start: 1998
  7. IMODIUM OTC [Concomitant]
     Indication: INCONTINENCE
     Route: 048
     Dates: start: 2001
  8. XALATAN [Concomitant]
     Indication: GLAUCOMA
     Dosage: 0.005%, ONE GTT TO EACH EYE HS
     Route: 050
     Dates: start: 201211

REACTIONS (6)
  - Corneal erosion [Unknown]
  - Eye haemorrhage [Unknown]
  - Vomiting [Not Recovered/Not Resolved]
  - Pleurisy [Unknown]
  - Increased upper airway secretion [Unknown]
  - Aphagia [Unknown]
